FAERS Safety Report 9785927 (Version 2)
Quarter: 2014Q1

REPORT INFORMATION
  Report Type: Spontaneous
  Country: US (occurrence: None)
  Receive Date: 20131224
  Receipt Date: 20140109
  Transmission Date: 20141002
  Serious: Yes (Hospitalization)
  Sender: FDA-Public Use
  Company Number: QPAP20130011

PATIENT
  Age: 8 Month
  Sex: Male
  Weight: 8.9 kg

DRUGS (1)
  1. Q-PAP [Suspect]
     Indication: PAIN
     Dosage: 1 ML EVERY 4-6 HOURS

REACTIONS (7)
  - Grand mal convulsion [None]
  - Metabolic acidosis [None]
  - Drug-induced liver injury [None]
  - Hepatic encephalopathy [None]
  - Acute hepatic failure [None]
  - Hepatotoxicity [None]
  - Thrombocytopenia [None]
